FAERS Safety Report 10716640 (Version 1)
Quarter: 2015Q1

REPORT INFORMATION
  Report Type: Spontaneous
  Country: US (occurrence: None)
  Receive Date: 20150115
  Receipt Date: 20150115
  Transmission Date: 20150721
  Serious: Yes (Disabling)
  Sender: FDA-Public Use
  Company Number: None

PATIENT
  Age: 14 Year
  Sex: Female
  Weight: 85.73 kg

DRUGS (1)
  1. MINOCYCLINE [Suspect]
     Active Substance: MINOCYCLINE\MINOCYCLINE HYDROCHLORIDE
     Indication: ACNE
     Dosage: 1 PILL, ONCE DAILY
     Route: 048
     Dates: start: 20141121, end: 20150105

REACTIONS (2)
  - Diplopia [None]
  - Benign intracranial hypertension [None]

NARRATIVE: CASE EVENT DATE: 20150102
